FAERS Safety Report 5444400-X (Version None)
Quarter: 2007Q3

REPORT INFORMATION
  Report Type: 
  Country: None (occurrence: None)
  Receive Date: 20070906
  Receipt Date: 20070829
  Transmission Date: 20080115
  Serious: Yes (Other)
  Sender: FDA-Public Use
  Company Number: PHEH2007US11817

PATIENT

DRUGS (1)
  1. TEKTURNA [Suspect]
     Dosage: 150 UNK, UNK

REACTIONS (3)
  - COUGH [None]
  - DYSPNOEA [None]
  - FORCED EXPIRATORY VOLUME DECREASED [None]
